FAERS Safety Report 4314897-7 (Version None)
Quarter: 2004Q1

REPORT INFORMATION
  Report Type: 
  Country: None (occurrence: None)
  Receive Date: 20040310
  Receipt Date: 20040310
  Transmission Date: 20041129
  Serious: Yes (Other)
  Sender: FDA-Public Use
  Company Number: None

PATIENT
  Age: 24 Year
  Sex: Female
  Weight: 70.7611 kg

DRUGS (3)
  1. ZANTAC 150 [Suspect]
     Indication: ABORTION MISSED
     Dosage: PO QD ORAL
     Route: 048
     Dates: start: 20031101, end: 20040309
  2. ZANTAC 150 [Suspect]
     Indication: PREGNANCY
     Dosage: PO QD ORAL
     Route: 048
     Dates: start: 20031101, end: 20040309
  3. PRENATAL VITAMINS [Concomitant]

REACTIONS (2)
  - FOETAL HEART RATE ABNORMAL [None]
  - MATERNAL DRUGS AFFECTING FOETUS [None]
